FAERS Safety Report 22385000 (Version 1)
Quarter: 2023Q2

REPORT INFORMATION
  Report Type: Spontaneous
  Country: US (occurrence: None)
  Receive Date: 20230527
  Receipt Date: 20230527
  Transmission Date: 20230721
  Serious: No
  Sender: FDA-Public Use
  Company Number: None

PATIENT
  Sex: Male
  Weight: 91.17 kg

DRUGS (8)
  1. CAPECITABINE [Suspect]
     Active Substance: CAPECITABINE
     Indication: Colon cancer
     Dosage: 1000MG-500MG TWICE DAILY ORAL - 7 DAYS ON, 7 D OFF? ?
     Route: 048
  2. ACETAMINOPHEN [Concomitant]
  3. AMLODIPINE [Concomitant]
     Active Substance: AMLODIPINE BESYLATE
  4. DOCUSATE [Concomitant]
  5. FERROUS SULFATE [Concomitant]
     Active Substance: FERROUS SULFATE
  6. GLYBURIDE [Concomitant]
     Active Substance: GLYBURIDE
  7. TAMSULOSIN [Suspect]
     Active Substance: TAMSULOSIN
  8. OXYBUTYNIN [Concomitant]

REACTIONS (4)
  - Blood glucose decreased [None]
  - Dehydration [None]
  - Blood potassium decreased [None]
  - Therapy cessation [None]
